FAERS Safety Report 16426024 (Version 1)
Quarter: 2019Q2

REPORT INFORMATION
  Report Type: Report from Study
  Country: US (occurrence: US)
  Receive Date: 20190613
  Receipt Date: 20190613
  Transmission Date: 20190711
  Serious: Yes (Life-Threatening, Hospitalization)
  Sender: FDA-Public Use
  Company Number: PHHY2019US135180

PATIENT
  Sex: Female

DRUGS (1)
  1. KYMRIAH [Suspect]
     Active Substance: TISAGENLECLEUCEL
     Indication: ACUTE LYMPHOCYTIC LEUKAEMIA
     Dosage: (DIVIDED DOSE)
     Route: 041

REACTIONS (4)
  - Respiratory failure [Unknown]
  - Pyrexia [Recovered/Resolved]
  - Hypotension [Unknown]
  - Cytokine release syndrome [Unknown]
